FAERS Safety Report 21265710 (Version 6)
Quarter: 2023Q1

REPORT INFORMATION
  Report Type: Spontaneous
  Country: US (occurrence: US)
  Receive Date: 20220829
  Receipt Date: 20230113
  Transmission Date: 20230418
  Serious: Yes (Hospitalization, Disabling)
  Sender: FDA-Public Use
  Company Number: US-EXELIXIS-CABO-22055268

PATIENT
  Age: 70 Year
  Sex: Male

DRUGS (18)
  1. CABOMETYX [Suspect]
     Active Substance: CABOZANTINIB S-MALATE
     Indication: Clear cell renal cell carcinoma
     Dosage: 60 MG, QD
     Route: 048
     Dates: start: 20220201
  2. CABOMETYX [Suspect]
     Active Substance: CABOZANTINIB S-MALATE
     Dosage: 40 MG
     Route: 048
     Dates: start: 20220329
  3. CABOMETYX [Suspect]
     Active Substance: CABOZANTINIB S-MALATE
     Dosage: 20 MG
     Route: 048
     Dates: start: 20220712, end: 20220718
  4. CABOMETYX [Suspect]
     Active Substance: CABOZANTINIB S-MALATE
     Dosage: 20 MG
     Route: 048
     Dates: start: 20221011
  5. BATIRAXCEPT [Suspect]
     Active Substance: BATIRAXCEPT
     Indication: Clear cell renal cell carcinoma
     Dosage: 15 MG/KG DAY 1 AND 15 OF EACH 28-DAY TREATMENT CYCLE
     Route: 042
     Dates: start: 20220201
  6. ELIQUIS [Concomitant]
     Active Substance: APIXABAN
     Indication: Deep vein thrombosis
  7. ELIQUIS [Concomitant]
     Active Substance: APIXABAN
     Indication: Coronary artery disease
  8. AMLODIPINE [Concomitant]
     Active Substance: AMLODIPINE BESYLATE
     Indication: Hypertension
  9. CLOBETASOL [Concomitant]
     Active Substance: CLOBETASOL
  10. DEXAMETHASONE [Concomitant]
     Active Substance: DEXAMETHASONE
  11. ATROPINE\DIPHENOXYLATE [Concomitant]
     Active Substance: ATROPINE\DIPHENOXYLATE
  12. FAMOTIDINE [Concomitant]
     Active Substance: FAMOTIDINE
     Indication: Gastrooesophageal reflux disease
  13. GABAPENTIN [Concomitant]
     Active Substance: GABAPENTIN
  14. MIRTAZAPINE [Concomitant]
     Active Substance: MIRTAZAPINE
  15. SIMVASTATIN [Concomitant]
     Active Substance: SIMVASTATIN
     Indication: Hyperlipidaemia
  16. TAMSULOSIN [Concomitant]
     Active Substance: TAMSULOSIN
  17. TYLENOL [Concomitant]
     Active Substance: ACETAMINOPHEN
  18. PLAVIX [Concomitant]
     Active Substance: CLOPIDOGREL BISULFATE
     Indication: Coronary artery disease

REACTIONS (3)
  - Perineal abscess [Recovered/Resolved]
  - Haematuria [Recovered/Resolved]
  - Embolism [Recovered/Resolved]

NARRATIVE: CASE EVENT DATE: 20220802
